FAERS Safety Report 12654866 (Version 6)
Quarter: 2017Q2

REPORT INFORMATION
  Report Type: Spontaneous
  Country: US (occurrence: US)
  Receive Date: 20160816
  Receipt Date: 20170619
  Transmission Date: 20170830
  Serious: Yes (Hospitalization, Other)
  Sender: FDA-Public Use
  Company Number: US-PFIZER INC-2016384572

PATIENT
  Age: 86 Year
  Sex: Female
  Weight: 77 kg

DRUGS (16)
  1. DECADRON [Concomitant]
     Active Substance: DEXAMETHASONE
     Dosage: 8 MG, UNK
     Route: 042
  2. DEXTROSE. [Suspect]
     Active Substance: DEXTROSE
     Indication: PROLIFERATIVE INJECTION THERAPY
  3. IBUPROFEN. [Concomitant]
     Active Substance: IBUPROFEN
     Indication: PAIN
     Dosage: 200 MG, EVERY 6 HOURS
  4. BIOTIN [Concomitant]
     Active Substance: BIOTIN
     Dosage: 1 MG, UNK
  5. DOXYCYCLINE. [Concomitant]
     Active Substance: DOXYCYCLINE
     Dosage: 100 MG, DAILY; (2 DAYS TO COMPLETE A 3 DAY COURSE)
     Route: 048
  6. LIDOCAINE HCL [Suspect]
     Active Substance: LIDOCAINE HYDROCHLORIDE
     Indication: ARTHRALGIA
     Dosage: UNK
     Route: 014
     Dates: start: 20160603, end: 20160808
  7. LIDOCAINE HCL [Suspect]
     Active Substance: LIDOCAINE HYDROCHLORIDE
     Indication: PROLIFERATIVE INJECTION THERAPY
  8. DOXYCYCLINE. [Concomitant]
     Active Substance: DOXYCYCLINE
     Dosage: 100 MG, 2X/DAY
     Route: 042
  9. AMBIEN [Concomitant]
     Active Substance: ZOLPIDEM TARTRATE
     Indication: INSOMNIA
     Dosage: UNK, AS NEEDED (AT BEDTIME)
  10. LORTAB [Concomitant]
     Active Substance: ACETAMINOPHEN\HYDROCODONE BITARTRATE
     Dosage: UNK UNK, AS NEEDED (Q.6 H. P.R.N)
  11. LIDOCAINE HCL [Suspect]
     Active Substance: LIDOCAINE HYDROCHLORIDE
     Indication: OSTEOARTHRITIS
  12. ZOFRAN [Concomitant]
     Active Substance: ONDANSETRON HYDROCHLORIDE
     Indication: NAUSEA
     Dosage: UNK, AS NEEDED
  13. SALINE [Concomitant]
     Active Substance: SODIUM CHLORIDE
     Indication: ELECTROLYTE DEPLETION
     Dosage: UNK (75 ML PER HOUR)
  14. TORADOL [Concomitant]
     Active Substance: KETOROLAC TROMETHAMINE
     Indication: PAIN
     Dosage: UNK, AS NEEDED (Q.4 H)
  15. DEXTROSE. [Suspect]
     Active Substance: DEXTROSE
     Indication: ARTHRALGIA
     Dosage: UNK
     Route: 014
     Dates: start: 20160808, end: 20160808
  16. NIACIN. [Concomitant]
     Active Substance: NIACIN
     Dosage: 100 MG, UNK

REACTIONS (10)
  - Vomiting [Not Recovered/Not Resolved]
  - Injection site pain [Unknown]
  - Limb discomfort [Unknown]
  - Condition aggravated [Not Recovered/Not Resolved]
  - Nausea [Not Recovered/Not Resolved]
  - Product use in unapproved indication [Unknown]
  - Arthralgia [Recovered/Resolved]
  - Pain [Not Recovered/Not Resolved]
  - Gait disturbance [Recovered/Resolved]
  - Hypovolaemia [Recovered/Resolved]

NARRATIVE: CASE EVENT DATE: 20160808
